FAERS Safety Report 11141647 (Version 3)
Quarter: 2015Q3

REPORT INFORMATION
  Report Type: Spontaneous
  Country: JP (occurrence: JP)
  Receive Date: 20150527
  Receipt Date: 20150915
  Transmission Date: 20151125
  Serious: Yes (Life-Threatening, Hospitalization, Other)
  Sender: FDA-Public Use
  Company Number: JP-BRISTOL-MYERS SQUIBB COMPANY-BMS-2015-033042

PATIENT
  Age: 68 Year
  Sex: Male
  Weight: 88 kg

DRUGS (6)
  1. IMIDAPRIL HYDROCHLORIDE [Concomitant]
     Active Substance: IMIDAPRIL HYDROCHLORIDE
     Indication: HYPERTENSION
     Dosage: 5 MG, QD
     Route: 048
     Dates: start: 201502, end: 20150513
  2. JANUVIA [Concomitant]
     Active Substance: SITAGLIPTIN PHOSPHATE
     Indication: DIABETES MELLITUS
     Dosage: 50 MG, QD
     Route: 048
     Dates: start: 201502, end: 20150513
  3. EURODIN                            /00401202/ [Concomitant]
     Active Substance: DIHYDROERGOCRISTINE MESYLATE
     Indication: INSOMNIA
     Dosage: 4 MG, QD
     Route: 048
     Dates: start: 201503, end: 20150513
  4. SERENACE [Concomitant]
     Active Substance: HALOPERIDOL
     Indication: INSOMNIA
     Dosage: 4 MG, QD
     Route: 048
     Dates: start: 201503, end: 20150513
  5. ARTIST [Concomitant]
     Active Substance: CARVEDILOL
     Indication: HYPERTENSION
     Dosage: 5 MG, BID
     Route: 048
     Dates: start: 201502, end: 20150513
  6. ELIQUIS [Suspect]
     Active Substance: APIXABAN
     Indication: CEREBROVASCULAR ACCIDENT PROPHYLAXIS
     Dosage: 5 MG, BID
     Route: 048
     Dates: start: 201501, end: 20150513

REACTIONS (13)
  - Epistaxis [Recovered/Resolved]
  - Haematuria [Recovered/Resolved]
  - Incisional hernia [Not Recovered/Not Resolved]
  - Endocarditis [Unknown]
  - Mitral valve incompetence [Recovered/Resolved]
  - Pulmonary oedema [Recovered/Resolved]
  - Umbilical hernia [Not Recovered/Not Resolved]
  - Aortic valve incompetence [Recovered/Resolved]
  - Anaemia [Unknown]
  - Embolic stroke [Unknown]
  - Pericardial effusion [Unknown]
  - Pleural effusion [Unknown]
  - Mitral valve replacement [Unknown]

NARRATIVE: CASE EVENT DATE: 20150130
